FAERS Safety Report 6645817-8 (Version None)
Quarter: 2010Q1

REPORT INFORMATION
  Report Type: 
  Country: None (occurrence: None)
  Receive Date: 20100309
  Receipt Date: 20090213
  Transmission Date: 20100710
  Serious: Yes (Hospitalization)
  Sender: FDA-Public Use
  Company Number: 2009PL000053

PATIENT
  Age: 81 Year
  Sex: Male

DRUGS (3)
  1. MERCAPTOPURINE [Suspect]
     Indication: CHEMOTHERAPY
     Dosage: 100 MG; QD; PO
     Route: 048
  2. ZYLOPRIM [Suspect]
     Dosage: 300 MG; QD ;
  3. WARFARIN SODIUM [Suspect]
     Indication: EMBOLISM
     Dosage: 8.5 MG; QD;

REACTIONS (5)
  - COAGULATION TIME SHORTENED [None]
  - DRUG INTERACTION [None]
  - FEBRILE NEUTROPENIA [None]
  - INTERNATIONAL NORMALISED RATIO DECREASED [None]
  - THROMBOCYTOPENIA [None]
